FAERS Safety Report 21542617 (Version 1)
Quarter: 2022Q4

REPORT INFORMATION
  Report Type: Spontaneous
  Country: IT (occurrence: IT)
  Receive Date: 20221102
  Receipt Date: 20221102
  Transmission Date: 20230112
  Serious: Yes (Other)
  Sender: FDA-Public Use
  Company Number: None

PATIENT
  Age: 28 Year
  Sex: Female
  Weight: 68 kg

DRUGS (1)
  1. COSENTYX [Suspect]
     Active Substance: SECUKINUMAB
     Indication: Psoriasis
     Dosage: UNK (DOSAGGIO INIZIALE SETTIMANALE ALLE SETTIMANE 0, 1, 2, 3 E 4 MEDIANTE DUEINIEZIONI SOTTOCUTANEE
     Route: 058
     Dates: start: 20161229, end: 20220516

REACTIONS (2)
  - Eczema [Unknown]
  - Loss of therapeutic response [Unknown]

NARRATIVE: CASE EVENT DATE: 20220621
